FAERS Safety Report 7502720-9 (Version None)
Quarter: 2011Q2

REPORT INFORMATION
  Report Type: 
  Country: None (occurrence: None)
  Receive Date: 20110525
  Receipt Date: 20110525
  Transmission Date: 20111010
  Serious: Yes (Hospitalization)
  Sender: FDA-Public Use
  Company Number: PHHO2006US10317

PATIENT
  Age: 82 Year
  Sex: Male
  Weight: 78.82 kg

DRUGS (19)
  1. PLACEBO [Suspect]
     Indication: CHRONIC OBSTRUCTIVE PULMONARY DISEASE
     Dosage: TREATMENT PHASE
     Dates: start: 20060428, end: 20060622
  2. MOXIFLOXACIN [Concomitant]
  3. LEVOTHYROXINE SODIUM [Suspect]
  4. LOSARTAN POTASSIUM [Concomitant]
  5. METHYLPREDNISOLONE [Concomitant]
  6. OMEPRAZOLE [Concomitant]
  7. POTASSIUM CHLORIDE [Concomitant]
  8. SIMVASTATIN [Suspect]
  9. PREDNISONE TAB [Concomitant]
  10. FOLIC ACID [Concomitant]
  11. FELODIPINE [Suspect]
  12. IPRATROPIUM BROMIDE [Concomitant]
  13. LOVENOX [Concomitant]
  14. METHOTREXATE [Concomitant]
  15. SPIRIVA [Suspect]
     Indication: CHRONIC OBSTRUCTIVE PULMONARY DISEASE
     Dosage: 18 UG, QD
  16. ENOXAPARIN [Concomitant]
  17. GLYBURIDE [Suspect]
  18. INSULIN [Concomitant]
  19. ASPIRIN [Concomitant]

REACTIONS (14)
  - DYSPNOEA [None]
  - NAUSEA [None]
  - PNEUMONIA [None]
  - RESPIRATORY GAS EXCHANGE DISORDER [None]
  - CHEST PAIN [None]
  - VOMITING [None]
  - TREMOR [None]
  - PLEURAL EFFUSION [None]
  - LEUKOCYTOSIS [None]
  - CHRONIC OBSTRUCTIVE PULMONARY DISEASE [None]
  - COUGH [None]
  - PYREXIA [None]
  - ABDOMINAL PAIN UPPER [None]
  - WHEEZING [None]
